FAERS Safety Report 4523443-4 (Version None)
Quarter: 2004Q4

REPORT INFORMATION
  Report Type: 
  Country: None (occurrence: None)
  Receive Date: 20041208
  Receipt Date: 20041129
  Transmission Date: 20050328
  Serious: Yes (Hospitalization)
  Sender: FDA-Public Use
  Company Number: US-2004-035800

PATIENT
  Age: 57 Year
  Sex: Female

DRUGS (8)
  1. BETASERON [Suspect]
     Indication: MULTIPLE SCLEROSIS
     Dosage: 8 MIU, EVERY 2D, SUBCUTANEOUS
     Route: 058
     Dates: start: 20020501, end: 20041129
  2. PREMARIN [Concomitant]
  3. MAXZIDE [Concomitant]
  4. ACETYLSALICYLIC ACID SRT [Concomitant]
  5. ATENOLOL [Concomitant]
  6. ZOCOR [Concomitant]
  7. ALLEGRA [Concomitant]
  8. TYLENOL (CAPLET) [Concomitant]

REACTIONS (4)
  - FATIGUE [None]
  - HAEMOPTYSIS [None]
  - TONSIL CANCER [None]
  - TONSILLAR HAEMORRHAGE [None]
